FAERS Safety Report 4406055-2 (Version None)
Quarter: 2004Q3

REPORT INFORMATION
  Report Type: 
  Country: None (occurrence: None)
  Receive Date: 20040723
  Receipt Date: 20040401
  Transmission Date: 20050211
  Serious: No
  Sender: FDA-Public Use
  Company Number: US-GLAXOSMITHKLINE-A0505598A

PATIENT
  Age: 55 Year
  Sex: Female

DRUGS (6)
  1. AVANDIA [Suspect]
     Dosage: 4MG PER DAY
     Route: 048
     Dates: start: 20031101
  2. EVISTA [Concomitant]
  3. TRICOR [Concomitant]
  4. CALCIUM [Concomitant]
  5. DETROL LA [Concomitant]
  6. ALLEGRA [Concomitant]

REACTIONS (5)
  - ABDOMINAL DISTENSION [None]
  - ACNE [None]
  - IRRITABILITY [None]
  - METRORRHAGIA [None]
  - VULVOVAGINAL DRYNESS [None]
